FAERS Safety Report 5198144-2 (Version None)
Quarter: 2006Q4

REPORT INFORMATION
  Report Type: 
  Country: None (occurrence: None)
  Receive Date: 20061228
  Receipt Date: 20061228
  Transmission Date: 20070319
  Serious: Yes (Hospitalization)
  Sender: FDA-Public Use
  Company Number: None

PATIENT
  Age: 50 Year
  Sex: Female
  Weight: 65.7716 kg

DRUGS (1)
  1. BONIVA [Suspect]
     Indication: OSTEOPOROSIS
     Dosage: ONE MONTHLY PO
     Route: 048
     Dates: start: 20061222, end: 20061222

REACTIONS (3)
  - ARTHRALGIA [None]
  - PAIN [None]
  - RASH [None]
